FAERS Safety Report 25772782 (Version 1)
Quarter: 2025Q3

REPORT INFORMATION
  Report Type: Spontaneous
  Country: IN (occurrence: IN)
  Receive Date: 20250908
  Receipt Date: 20250908
  Transmission Date: 20251021
  Serious: Yes (Hospitalization)
  Sender: STRIDES
  Company Number: IN-STRIDES ARCOLAB LIMITED-2025SP011332

PATIENT
  Age: 4 Decade
  Sex: Female

DRUGS (5)
  1. OLANZAPINE [Interacting]
     Active Substance: OLANZAPINE
     Indication: Brief psychotic disorder, with postpartum onset
     Route: 065
  2. METHYLCOBALAMIN\NIACINAMIDE\PYRIDOXINE [Interacting]
     Active Substance: METHYLCOBALAMIN\NIACINAMIDE\PYRIDOXINE
     Indication: Pain in extremity
     Route: 030
  3. METHYLCOBALAMIN\NIACINAMIDE\PYRIDOXINE [Interacting]
     Active Substance: METHYLCOBALAMIN\NIACINAMIDE\PYRIDOXINE
     Indication: Burning sensation
  4. CLONAZEPAM [Concomitant]
     Active Substance: CLONAZEPAM
     Indication: Brief psychotic disorder, with postpartum onset
     Route: 065
  5. BENZYL ALCOHOL [Concomitant]
     Active Substance: BENZYL ALCOHOL
     Indication: Product used for unknown indication
     Route: 030

REACTIONS (3)
  - Dermatitis acneiform [Recovered/Resolved]
  - Potentiating drug interaction [Recovered/Resolved]
  - Off label use [Unknown]
